FAERS Safety Report 22521216 (Version 1)
Quarter: 2023Q2

REPORT INFORMATION
  Report Type: Report from Study
  Country: US (occurrence: US)
  Receive Date: 20230605
  Receipt Date: 20230605
  Transmission Date: 20230722
  Serious: Yes (Hospitalization, Other)
  Sender: FDA-Public Use
  Company Number: US-MYLANLABS-2023M1037958

PATIENT
  Sex: Male
  Weight: 123.4 kg

DRUGS (3)
  1. CLOZAPINE [Suspect]
     Active Substance: CLOZAPINE
     Indication: Product used for unknown indication
     Dosage: UNK
     Route: 048
  2. CLOZAPINE [Suspect]
     Active Substance: CLOZAPINE
     Dosage: 250 MILLIGRAM, QD (250 MG HS)
     Route: 065
  3. CLOZAPINE [Suspect]
     Active Substance: CLOZAPINE
     Indication: Product used for unknown indication
     Dosage: UNK
     Route: 048

REACTIONS (7)
  - Sepsis [Recovered/Resolved]
  - Presyncope [Unknown]
  - Device related infection [Unknown]
  - Urinary tract infection [Unknown]
  - Syncope [Recovered/Resolved]
  - Acute kidney injury [Unknown]
  - Hypernatraemia [Not Recovered/Not Resolved]
